FAERS Safety Report 23181798 (Version 2)
Quarter: 2023Q4

REPORT INFORMATION
  Report Type: Spontaneous
  Country: US (occurrence: US)
  Receive Date: 20231114
  Receipt Date: 20231220
  Transmission Date: 20240110
  Serious: No
  Sender: FDA-Public Use
  Company Number: US-BIOGEN-2023BI01235682

PATIENT
  Sex: Male

DRUGS (2)
  1. TYSABRI [Suspect]
     Active Substance: NATALIZUMAB
     Indication: Multiple sclerosis
     Route: 050
     Dates: start: 20140409
  2. TYSABRI [Suspect]
     Active Substance: NATALIZUMAB
     Dosage: MOST RECENT INFUSION ON 21-NOV-2023.
     Route: 050
     Dates: start: 20180720

REACTIONS (1)
  - SARS-CoV-2 test positive [Unknown]
